FAERS Safety Report 9866747 (Version 3)
Quarter: 2014Q2

REPORT INFORMATION
  Report Type: Report from Study
  Country: CA (occurrence: CA)
  Receive Date: 20140204
  Receipt Date: 20140502
  Transmission Date: 20141212
  Serious: Yes (Hospitalization, Other)
  Sender: FDA-Public Use
  Company Number: CA-BRISTOL-MYERS SQUIBB COMPANY-19162270

PATIENT
  Age: 70 Year
  Sex: Female

DRUGS (7)
  1. ORENCIA FOR INJ 250 MG/VIAL [Suspect]
     Indication: RHEUMATOID ARTHRITIS
     Dosage: 1DF=750 UT NOS,LOT#:3C83972, INJ POW,LYOPHI FR SOLN 250 MG?LT DSE 23AG13
     Dates: start: 20130528
  2. PREDNISONE [Suspect]
  3. METHOTREXATE [Suspect]
  4. WARFARIN [Concomitant]
  5. SYMBICORT [Concomitant]
  6. PLAQUENIL [Concomitant]
  7. GABAPENTIN [Concomitant]

REACTIONS (12)
  - Enterococcal infection [Unknown]
  - Arthralgia [Unknown]
  - Pneumonia [Unknown]
  - Sepsis [Unknown]
  - Arthropathy [Unknown]
  - Bladder prolapse [Unknown]
  - Oropharyngeal pain [Recovered/Resolved]
  - Back pain [Unknown]
  - Arthralgia [Unknown]
  - Pain [Unknown]
  - Vertigo [Unknown]
  - Drug ineffective [Unknown]
